FAERS Safety Report 5537897-8 (Version None)
Quarter: 2007Q4

REPORT INFORMATION
  Report Type: 
  Country: None (occurrence: None)
  Receive Date: 20071207
  Receipt Date: 20071128
  Transmission Date: 20080405
  Serious: Yes (Other)
  Sender: FDA-Public Use
  Company Number: US-BAYER-200714976NA

PATIENT
  Age: 31 Year
  Sex: Female
  Weight: 49 kg

DRUGS (3)
  1. MIRENA [Suspect]
     Indication: CONTRACEPTION
     Route: 015
     Dates: start: 20070720, end: 20070828
  2. PLATELETS [Concomitant]
     Indication: THROMBOCYTOPENIA
  3. ORTHO TRI-CYCLEN [Concomitant]
     Indication: ORAL CONTRACEPTION

REACTIONS (3)
  - IUCD COMPLICATION [None]
  - PLATELET COUNT DECREASED [None]
  - THROMBOCYTOPENIA [None]
